FAERS Safety Report 4932985-9 (Version None)
Quarter: 2006Q1

REPORT INFORMATION
  Report Type: 
  Country: None (occurrence: None)
  Receive Date: 20060301
  Receipt Date: 20060216
  Transmission Date: 20060701
  Serious: Yes (Hospitalization)
  Sender: FDA-Public Use
  Company Number: 2005152485

PATIENT
  Age: 65 Year
  Sex: Male
  Weight: 87.7 kg

DRUGS (6)
  1. SUTENT [Suspect]
     Indication: METASTATIC RENAL CELL CARCINOMA
     Dosage: SEE IMAGE
     Route: 048
     Dates: start: 20050615, end: 20050712
  2. SUTENT [Suspect]
     Indication: METASTATIC RENAL CELL CARCINOMA
     Dosage: SEE IMAGE
     Route: 048
     Dates: start: 20050727, end: 20051115
  3. SUTENT [Suspect]
     Indication: METASTATIC RENAL CELL CARCINOMA
     Dosage: SEE IMAGE
     Route: 048
     Dates: start: 20051129, end: 20051227
  4. GEFITINIB (GEFITINIB) [Suspect]
     Indication: METASTATIC RENAL CELL CARCINOMA
     Dosage: 250 MG (250 MG, 1 IN 1 D), ORAL
     Route: 048
     Dates: start: 20050624, end: 20051106
  5. PRILOSEC [Suspect]
  6. SYNTHROID [Concomitant]

REACTIONS (1)
  - SINUS TACHYCARDIA [None]
